FAERS Safety Report 7110212-4 (Version None)
Quarter: 2010Q4

REPORT INFORMATION
  Report Type: 
  Country: None (occurrence: None)
  Receive Date: 20101117
  Receipt Date: 20101117
  Transmission Date: 20110411
  Serious: No
  Sender: FDA-Public Use
  Company Number: None

PATIENT
  Sex: Female
  Weight: 54.8852 kg

DRUGS (4)
  1. COZAAR [Suspect]
     Indication: ATRIAL FIBRILLATION
  2. COZAAR [Suspect]
     Indication: CARDIAC FAILURE CONGESTIVE
  3. COZAAR [Suspect]
     Indication: HYPERTENSION
  4. COZAAR [Suspect]
     Indication: SINUS BRADYCARDIA

REACTIONS (3)
  - DIZZINESS [None]
  - PRODUCT QUALITY ISSUE [None]
  - VOMITING [None]
